FAERS Safety Report 24834323 (Version 5)
Quarter: 2025Q3

REPORT INFORMATION
  Report Type: Report from Study
  Country: US (occurrence: US)
  Receive Date: 20250113
  Receipt Date: 20250807
  Transmission Date: 20251020
  Serious: Yes (Hospitalization, Other)
  Sender: BIOGEN
  Company Number: US-BIOGEN-2024BI01295422

PATIENT
  Sex: Male

DRUGS (1)
  1. SKYCLARYS [Suspect]
     Active Substance: OMAVELOXOLONE
     Indication: Friedreich^s ataxia
     Dosage: EMPTY STOMACH ONE HOUR PRIOR TO EATING
     Route: 050
     Dates: start: 20241023, end: 20250119

REACTIONS (5)
  - Asthenia [Unknown]
  - Full blood count decreased [Unknown]
  - Anaemia [Unknown]
  - Friedreich^s ataxia [Not Recovered/Not Resolved]
  - Antibody test positive [Unknown]
